FAERS Safety Report 6264340-6 (Version None)
Quarter: 2009Q3

REPORT INFORMATION
  Report Type: 
  Country: None (occurrence: None)
  Receive Date: 20090710
  Receipt Date: 20090630
  Transmission Date: 20100115
  Serious: Yes (Hospitalization)
  Sender: FDA-Public Use
  Company Number: A0794870A

PATIENT
  Age: 43 Year
  Sex: Female

DRUGS (2)
  1. AVANDIA [Suspect]
     Dosage: 8MG PER DAY
     Route: 065
     Dates: start: 20010101, end: 20050101
  2. GLUCOVANCE [Concomitant]

REACTIONS (1)
  - MYOCARDIAL INFARCTION [None]
